FAERS Safety Report 7227310-7 (Version None)
Quarter: 2011Q1

REPORT INFORMATION
  Report Type: 
  Country: None (occurrence: None)
  Receive Date: 20110114
  Receipt Date: 20110110
  Transmission Date: 20110831
  Serious: Yes (Death)
  Sender: FDA-Public Use
  Company Number: B0693009A

PATIENT
  Sex: Female
  Weight: 75 kg

DRUGS (5)
  1. ZANAMIVIR [Suspect]
     Indication: INFLUENZA
     Dosage: 1800MG PER DAY
     Route: 042
     Dates: start: 20110107
  2. TAVANIC [Concomitant]
     Route: 065
  3. OSELTAMIVIR [Concomitant]
     Indication: INFLUENZA
     Dosage: 150MG PER DAY
     Route: 048
  4. IMIPENEM AND CILASTATIN [Concomitant]
     Route: 065
  5. VANCOMYCIN [Concomitant]
     Route: 065

REACTIONS (2)
  - HAEMODYNAMIC INSTABILITY [None]
  - HYPOXIA [None]
